FAERS Safety Report 23144963 (Version 1)
Quarter: 2023Q4

REPORT INFORMATION
  Report Type: Spontaneous
  Country: JP (occurrence: JP)
  Receive Date: 20231103
  Receipt Date: 20231103
  Transmission Date: 20240109
  Serious: Yes (Hospitalization, Other)
  Sender: FDA-Public Use
  Company Number: JP-PAIPHARMA-2023-JP-000411

PATIENT
  Age: 80 Year
  Sex: Male

DRUGS (5)
  1. LITHIUM [Suspect]
     Active Substance: LITHIUM
     Indication: Bipolar disorder
     Dosage: 600 MG
  2. OLANZAPINE [Suspect]
     Active Substance: OLANZAPINE
     Indication: Bipolar disorder
     Dosage: 2.5 MG
  3. NIFEDIPINE [Concomitant]
     Active Substance: NIFEDIPINE
  4. ISOSORBIDE [Concomitant]
     Active Substance: ISOSORBIDE
  5. BEZAFIBRATE [Concomitant]
     Active Substance: BEZAFIBRATE

REACTIONS (2)
  - Withdrawal syndrome [Recovered/Resolved]
  - Neuroleptic malignant syndrome [Recovered/Resolved]
